FAERS Safety Report 5454389-5 (Version None)
Quarter: 2007Q3

REPORT INFORMATION
  Report Type: 
  Country: None (occurrence: None)
  Receive Date: 20070917
  Receipt Date: 20070228
  Transmission Date: 20080115
  Serious: Yes (Hospitalization, Disabling)
  Sender: FDA-Public Use
  Company Number: US-ASTRAZENECA-2006UW12332

PATIENT
  Sex: Female
  Weight: 84.1 kg

DRUGS (6)
  1. SEROQUEL [Suspect]
     Indication: DEPRESSION
     Route: 048
     Dates: start: 19990101
  2. ZYPREXA [Suspect]
  3. ABILIFY [Concomitant]
  4. GEODON [Concomitant]
  5. RISPERDAL [Concomitant]
  6. LEXAPRO [Concomitant]

REACTIONS (3)
  - DIABETES MELLITUS [None]
  - HALLUCINATION, VISUAL [None]
  - HYPERTENSION [None]
